FAERS Safety Report 6358960-8 (Version None)
Quarter: 2009Q3

REPORT INFORMATION
  Report Type: 
  Country: None (occurrence: None)
  Receive Date: 20090914
  Receipt Date: 20090831
  Transmission Date: 20100115
  Serious: Yes (Death, Hospitalization)
  Sender: FDA-Public Use
  Company Number: 2009AL005848

PATIENT
  Age: 60 Year
  Sex: Male

DRUGS (2)
  1. METFORMIN HYDROCHLORIDE [Suspect]
     Indication: TYPE 2 DIABETES MELLITUS
     Dosage: 500 MG; BID;
  2. CORODIL [Concomitant]

REACTIONS (17)
  - ARTERIOSCLEROSIS [None]
  - AZOTAEMIA [None]
  - BLOOD CREATININE INCREASED [None]
  - BRADYCARDIA [None]
  - CARDIAC ARREST [None]
  - CARDIOGENIC SHOCK [None]
  - DRUG TOXICITY [None]
  - HEPATIC CIRRHOSIS [None]
  - INTERCAPILLARY GLOMERULOSCLEROSIS [None]
  - LACTIC ACIDOSIS [None]
  - LOSS OF CONSCIOUSNESS [None]
  - METABOLIC ACIDOSIS [None]
  - PLEURAL FIBROSIS [None]
  - PULMONARY CONGESTION [None]
  - PUPIL FIXED [None]
  - RESUSCITATION [None]
  - SHOCK [None]
